FAERS Safety Report 9187031 (Version 1)
Quarter: 2012Q4

REPORT INFORMATION
  Report Type: 
  Country: US (occurrence: US)
  Receive Date: 20121031
  Receipt Date: 20121031
  Transmission Date: 20130627
  Serious: No
  Sender: FDA-Public Use
  Company Number: US-009507513-1210USA013809

PATIENT
  Sex: Male

DRUGS (4)
  1. VICTRELIS [Suspect]
     Dosage: UNK
     Dates: start: 20120913
  2. RIBAVIRIN [Suspect]
     Dosage: UNK
     Dates: start: 20120801
  3. RIBAVIRIN [Suspect]
     Dosage: UNK, bid
  4. PEGASYS [Suspect]
     Dosage: UNK
     Dates: start: 20120801

REACTIONS (1)
  - Haemoglobin decreased [Unknown]
